FAERS Safety Report 19087304 (Version 2)
Quarter: 2021Q2

REPORT INFORMATION
  Report Type: Report from Study
  Country: UG (occurrence: UG)
  Receive Date: 20210402
  Receipt Date: 20210514
  Transmission Date: 20210717
  Serious: Yes (Hospitalization, Other)
  Sender: FDA-Public Use
  Company Number: UG-CIPLA LTD.-2021UG02466

PATIENT

DRUGS (3)
  1. LAMIVUDINE/ZIDOVUDINE [Suspect]
     Active Substance: LAMIVUDINE\ZIDOVUDINE
     Indication: HIV INFECTION WHO CLINICAL STAGE II
     Dosage: 2.5 DOSAGE FORM, BID, (150MG/75MG BID DAILY)
     Route: 048
     Dates: start: 20160627, end: 20180502
  2. LOPINAVIR/RITONAVIR [Suspect]
     Active Substance: LOPINAVIR\RITONAVIR
     Indication: HIV INFECTION WHO CLINICAL STAGE II
     Dosage: 5 DOSAGE FORM, BID, (200MG/50MG BID DAILY)
     Route: 048
     Dates: start: 20160627, end: 20180502
  3. SEPTRIN [Concomitant]
     Active Substance: SULFAMETHOXAZOLE\TRIMETHOPRIM
     Indication: PROPHYLAXIS
     Dosage: UNK
     Route: 065

REACTIONS (1)
  - Central nervous system infection [Recovered/Resolved]

NARRATIVE: CASE EVENT DATE: 20170404
